FAERS Safety Report 9143760 (Version 2)
Quarter: 2013Q2

REPORT INFORMATION
  Report Type: Spontaneous
  Country: US (occurrence: US)
  Receive Date: 20130306
  Receipt Date: 20130405
  Transmission Date: 20140414
  Serious: Yes (Hospitalization, Other)
  Sender: FDA-Public Use
  Company Number: US-BRISTOL-MYERS SQUIBB COMPANY-17388737

PATIENT
  Age: 71 Year
  Sex: Female

DRUGS (5)
  1. YERVOY [Suspect]
     Indication: INTRAOCULAR MELANOMA
     Dosage: 19DEC12,?3RD DOSE 16JAN13,DOSE VALUE:3MG
     Route: 042
     Dates: start: 20121128
  2. SARNA [Concomitant]
     Dosage: CREAM
  3. PEPCID [Concomitant]
  4. ALLEGRA [Concomitant]
  5. BENADRYL [Concomitant]

REACTIONS (6)
  - Toxic epidermal necrolysis [Recovering/Resolving]
  - Pancytopenia [Unknown]
  - Hyperglycaemia [Unknown]
  - Urosepsis [Unknown]
  - Fall [Unknown]
  - Ischaemic stroke [Unknown]
